FAERS Safety Report 8095050-0 (Version None)
Quarter: 2012Q1

REPORT INFORMATION
  Report Type: 
  Country: None (occurrence: None)
  Receive Date: 20120131
  Receipt Date: 20120131
  Transmission Date: 20120608
  Serious: Yes (Disabling)
  Sender: FDA-Public Use
  Company Number: None

PATIENT
  Age: 83 Year
  Sex: Female

DRUGS (4)
  1. ALTEPLASE [Suspect]
     Indication: DEEP VEIN THROMBOSIS
     Dosage: 100.0 MG
     Route: 042
     Dates: start: 20110917, end: 20110917
  2. ALTEPLASE [Suspect]
     Indication: PULMONARY EMBOLISM
     Dosage: 100.0 MG
     Route: 042
     Dates: start: 20110917, end: 20110917
  3. LOVENOX [Concomitant]
     Indication: DEEP VEIN THROMBOSIS
     Dosage: 1 MG/KG
     Route: 058
     Dates: start: 20110917, end: 20110924
  4. LOVENOX [Concomitant]
     Indication: PULMONARY EMBOLISM
     Dosage: 1 MG/KG
     Route: 058
     Dates: start: 20110917, end: 20110924

REACTIONS (5)
  - HAEMATURIA [None]
  - PULMONARY EMBOLISM [None]
  - DEEP VEIN THROMBOSIS [None]
  - HAEMATOMA [None]
  - EPISTAXIS [None]
